FAERS Safety Report 5100652-7 (Version None)
Quarter: 2006Q3

REPORT INFORMATION
  Report Type: 
  Country: None (occurrence: None)
  Receive Date: 20060906
  Receipt Date: 20060830
  Transmission Date: 20061208
  Serious: Yes (Congenital Anomaly)
  Sender: FDA-Public Use
  Company Number: 145111USA

PATIENT
  Sex: Female

DRUGS (1)
  1. COPAXONE [Suspect]
     Indication: MULTIPLE SCLEROSIS
     Dosage: 20 MILLIGRAM QD SUBCUTANEOUS
     Route: 058
     Dates: start: 20000902

REACTIONS (7)
  - DRUG EXPOSURE DURING PREGNANCY [None]
  - DRUG EXPOSURE VIA BREAST MILK [None]
  - GENITALIA EXTERNAL AMBIGUOUS [None]
  - PERSISTENT UROGENITAL SINUS [None]
  - PREMATURE BABY [None]
  - TRANSMISSION OF DRUG VIA SEMEN [None]
  - VAGINAL ENLARGEMENT [None]
